FAERS Safety Report 17108955 (Version 1)
Quarter: 2019Q4

REPORT INFORMATION
  Report Type: Spontaneous
  Country: US (occurrence: US)
  Receive Date: 20191203
  Receipt Date: 20191203
  Transmission Date: 20200122
  Serious: No
  Sender: FDA-Public Use
  Company Number: US-PERRIGO-19US002695

PATIENT
  Sex: Female

DRUGS (2)
  1. BACITRACIN. [Suspect]
     Active Substance: BACITRACIN
     Indication: BLEPHARITIS
     Dosage: 1/2 TO 1/3 INCH, BID
     Route: 047
     Dates: start: 20190225
  2. VITAMINS NOS [Concomitant]
     Active Substance: VITAMINS
     Indication: SUPPLEMENTATION THERAPY
     Dosage: UNK
     Route: 048

REACTIONS (3)
  - Drug ineffective [Unknown]
  - Hypersensitivity [Unknown]
  - Condition aggravated [Unknown]

NARRATIVE: CASE EVENT DATE: 20190225
